FAERS Safety Report 4751293-2 (Version None)
Quarter: 2005Q3

REPORT INFORMATION
  Report Type: 
  Country: None (occurrence: None)
  Receive Date: 20050823
  Receipt Date: 20050823
  Transmission Date: 20060218
  Serious: Yes (Other)
  Sender: FDA-Public Use
  Company Number: None

PATIENT
  Sex: Female

DRUGS (1)
  1. AZITHROMYCIN [Suspect]
     Dosage: RESPIRATORY    (VARIOUS LOTS OVER 2 YR. PERIOD)
     Route: 055

REACTIONS (4)
  - ACCIDENTAL EXPOSURE [None]
  - CHEST DISCOMFORT [None]
  - PARAESTHESIA ORAL [None]
  - THROAT TIGHTNESS [None]
